FAERS Safety Report 9374399 (Version 1)
Quarter: 2013Q2

REPORT INFORMATION
  Report Type: Report from Study
  Country: IN (occurrence: IN)
  Receive Date: 20130628
  Receipt Date: 20130628
  Transmission Date: 20140414
  Serious: Yes (Death, Hospitalization)
  Sender: FDA-Public Use
  Company Number: PHHO2012IN013803

PATIENT
  Age: 59 Year
  Sex: Male
  Weight: 58.2 kg

DRUGS (16)
  1. BLINDED ALISKIREN [Suspect]
     Indication: CARDIAC FAILURE
     Dosage: CODE NOT BROKEN
     Route: 048
     Dates: start: 20120816, end: 20130318
  2. BLINDED ENALAPRIL [Suspect]
     Indication: CARDIAC FAILURE
     Dosage: CODE NOT BROKEN
     Route: 048
     Dates: start: 20120816, end: 20130318
  3. BLINDED NO TREATMENT RECEIVED [Suspect]
     Indication: CARDIAC FAILURE
     Dosage: CODE NOT BROKEN
     Route: 048
     Dates: start: 20120816, end: 20130318
  4. TORASEMIDE [Concomitant]
     Indication: CARDIAC FAILURE
     Dosage: 10 MG, BID
     Route: 048
     Dates: start: 20120816, end: 20121005
  5. TORASEMIDE [Concomitant]
     Dosage: 10 MG, QD
     Route: 048
     Dates: start: 20121006, end: 20130318
  6. CARVEDILOL [Concomitant]
     Indication: CARDIAC FAILURE
     Dosage: 3.125 MG, BID
     Route: 048
     Dates: start: 20120816, end: 20130318
  7. CLOPIDOGREL [Concomitant]
     Indication: CARDIAC FAILURE
     Dosage: 15 MG, QD
     Route: 048
     Dates: start: 20120404, end: 20130318
  8. ASPIRIN [Concomitant]
     Indication: CARDIAC FAILURE
     Dosage: 150 MG, QD
     Route: 048
     Dates: start: 20120404, end: 20130318
  9. GLIMEPIRIDE [Concomitant]
     Indication: DIABETES MELLITUS
     Dosage: 1 MG, QD
     Route: 048
     Dates: start: 20121006, end: 20121022
  10. GLIMEPIRIDE [Concomitant]
     Dosage: 1 MG, BID
     Route: 048
     Dates: start: 20121023, end: 20121105
  11. GLIMEPIRIDE [Concomitant]
     Dosage: 2 MG, BID
     Route: 048
     Dates: start: 20121106, end: 20130318
  12. SPIRONOLACTONE [Concomitant]
     Indication: CARDIAC FAILURE
     Dosage: 50 MG, QD
     Route: 048
     Dates: start: 20121006, end: 20121022
  13. ATORVASTATIN [Concomitant]
     Indication: HYPERTENSION
     Dosage: 20 MG, QD
     Route: 048
     Dates: start: 20121023, end: 20130318
  14. ATORVASTATIN [Concomitant]
     Indication: CARDIAC FAILURE
  15. ATORVASTATIN [Concomitant]
     Indication: HYPERCHOLESTEROLAEMIA
  16. STAMLO [Concomitant]
     Indication: HYPERTENSION
     Dosage: 5 MG, QD
     Route: 048
     Dates: start: 20121023, end: 20130318

REACTIONS (2)
  - Cardiac failure [Fatal]
  - Left ventricular failure [Recovered/Resolved]
